FAERS Safety Report 8267372-1 (Version None)
Quarter: 2012Q2

REPORT INFORMATION
  Report Type: 
  Country: None (occurrence: None)
  Receive Date: 20120409
  Receipt Date: 20120331
  Transmission Date: 20120825
  Serious: Yes (Hospitalization, Other)
  Sender: FDA-Public Use
  Company Number: PHHY2012DE028408

PATIENT
  Sex: Male

DRUGS (12)
  1. INSULIN [Concomitant]
     Indication: DIABETES MELLITUS
  2. RASILEZ [Suspect]
     Indication: HYPERTENSION
     Dosage: 1 DF, DAILY
     Dates: start: 20081029
  3. GLIMEPIRIDE [Suspect]
     Indication: DIABETES MELLITUS
     Dosage: 1 DF, DAILY
     Route: 048
     Dates: start: 20060101
  4. DIGITOXIN TAB [Suspect]
     Indication: ATRIAL FIBRILLATION
     Dosage: 1 DF, DAILY
     Route: 048
  5. NITRATES [Concomitant]
  6. TORSEMIDE [Suspect]
     Indication: CARDIAC FAILURE
  7. CARVEDILOL [Suspect]
     Indication: HYPERTENSION
     Dosage: 1 DF, BID
     Route: 048
     Dates: start: 20030127
  8. EXFORGE [Suspect]
     Indication: HYPERTENSION
     Dosage: 1 DF, DAILY
  9. TORSEMIDE [Suspect]
     Indication: HYPERTENSION
     Dosage: 1.5 DF, DAILY
     Route: 048
     Dates: start: 20050819
  10. BETA BLOCKING AGENTS [Concomitant]
  11. PLATELET AGGREGATION INHIBITORS (OF NSAID GROUP) [Concomitant]
  12. HMG COA REDUCTASE INHIBITORS (STATINS) [Concomitant]

REACTIONS (4)
  - INFECTIOUS PLEURAL EFFUSION [None]
  - ELECTROCARDIOGRAM QRS COMPLEX PROLONGED [None]
  - CHRONIC OBSTRUCTIVE PULMONARY DISEASE [None]
  - PNEUMONIA [None]
